FAERS Safety Report 6702775-5 (Version None)
Quarter: 2010Q2

REPORT INFORMATION
  Report Type: 
  Country: None (occurrence: None)
  Receive Date: 20100429
  Receipt Date: 20100419
  Transmission Date: 20101027
  Serious: Yes (Hospitalization)
  Sender: FDA-Public Use
  Company Number: DE-ELI_LILLY_AND_COMPANY-DE201004004560

PATIENT
  Sex: Male

DRUGS (6)
  1. FORTEO [Suspect]
     Indication: OSTEOPOROSIS
     Dosage: 20 UG, UNKNOWN
     Route: 058
     Dates: start: 20090414
  2. CORTISONE [Concomitant]
     Dosage: UNK, UNKNOWN
     Route: 065
  3. OPIOIDS [Concomitant]
     Dosage: UNK, UNKNOWN
     Route: 065
  4. DIPYRONE TAB [Concomitant]
     Dosage: UNK, UNKNOWN
     Route: 065
  5. CALCIUM [Concomitant]
     Dosage: UNK, UNKNOWN
     Route: 065
  6. DEKRISTOL [Concomitant]
     Dosage: UNK, UNKNOWN
     Route: 065

REACTIONS (4)
  - COAGULOPATHY [None]
  - GAMMA-GLUTAMYLTRANSFERASE INCREASED [None]
  - HYPOTHYROIDISM [None]
  - INJECTION SITE HAEMATOMA [None]
